FAERS Safety Report 8099845-9 (Version None)
Quarter: 2012Q1

REPORT INFORMATION
  Report Type: 
  Country: None (occurrence: None)
  Receive Date: 20120129
  Receipt Date: 20111009
  Transmission Date: 20120608
  Serious: No
  Sender: FDA-Public Use
  Company Number: US-ABBOTT-11P-163-0862639-00

PATIENT
  Age: 50 Year
  Sex: Female

DRUGS (15)
  1. MELOXICAM [Concomitant]
     Indication: PRODUCT USED FOR UNKNOWN INDICATION
     Dosage: 7.5 MG DAILY
  2. VITAMIN D [Concomitant]
     Indication: PRODUCT USED FOR UNKNOWN INDICATION
     Dosage: 5000 UNITS DAILY
  3. AMBIEN CR [Concomitant]
     Indication: PRODUCT USED FOR UNKNOWN INDICATION
  4. OMEPRAZOLE [Concomitant]
     Indication: PRODUCT USED FOR UNKNOWN INDICATION
     Dosage: 20 MG DAILY
  5. HUMIRA [Suspect]
     Indication: PSORIASIS
     Dates: start: 20081001, end: 20090901
  6. HUMIRA [Suspect]
     Dates: start: 20090901
  7. PREDNISONE TAB [Suspect]
     Indication: RED BLOOD CELL SEDIMENTATION RATE INCREASED
     Dosage: 2.5 MG DAILY
     Dates: start: 20110901
  8. DIOVAN HCT [Concomitant]
     Indication: PRODUCT USED FOR UNKNOWN INDICATION
     Dosage: 1-160/12.5MG TAB DAILY
  9. ACTOPLUS MET [Concomitant]
     Indication: PRODUCT USED FOR UNKNOWN INDICATION
     Dosage: 2-18/850 MG TABS DAILY
  10. GLUCOTROL [Concomitant]
     Indication: PRODUCT USED FOR UNKNOWN INDICATION
  11. DILTIAZEM HCL [Concomitant]
     Indication: PRODUCT USED FOR UNKNOWN INDICATION
     Dosage: 360 MG DAILY
  12. METHOTREXATE [Suspect]
     Indication: RED BLOOD CELL SEDIMENTATION RATE INCREASED
     Dates: start: 20110901
  13. ETODOLAC [Suspect]
     Indication: RED BLOOD CELL SEDIMENTATION RATE INCREASED
     Dosage: DAILY
     Dates: start: 20110901
  14. ZYRTEC [Concomitant]
     Indication: PRODUCT USED FOR UNKNOWN INDICATION
     Dosage: 10 MG DAILY
  15. CYMBALTA [Concomitant]
     Indication: PRODUCT USED FOR UNKNOWN INDICATION
     Dosage: 60 MG DAILY

REACTIONS (4)
  - JOINT SWELLING [None]
  - RED BLOOD CELL SEDIMENTATION RATE INCREASED [None]
  - ARTHRALGIA [None]
  - NAUSEA [None]
